FAERS Safety Report 6912018-5 (Version None)
Quarter: 2010Q3

REPORT INFORMATION
  Report Type: 
  Country: None (occurrence: None)
  Receive Date: 20100806
  Receipt Date: 20071114
  Transmission Date: 20110219
  Serious: No
  Sender: FDA-Public Use
  Company Number: US-PFIZER INC-2007096535

PATIENT

DRUGS (2)
  1. DILANTIN [Suspect]
     Route: 042
  2. DILANTIN [Suspect]
     Route: 048

REACTIONS (1)
  - BLOOD ALBUMIN DECREASED [None]
